FAERS Safety Report 4688715-1 (Version None)
Quarter: 2005Q2

REPORT INFORMATION
  Report Type: 
  Country: None (occurrence: None)
  Receive Date: 20050613
  Receipt Date: 20050120
  Transmission Date: 20051028
  Serious: Yes (Other)
  Sender: FDA-Public Use
  Company Number: PHEH2005US01118

PATIENT
  Age: 81 Year
  Sex: Male
  Weight: 69 kg

DRUGS (4)
  1. ZELNORM [Suspect]
     Indication: DIARRHOEA
     Dosage: 6 MG, BID
     Route: 048
     Dates: start: 20050113, end: 20050114
  2. ATENOLOL [Concomitant]
  3. ASPIRIN [Concomitant]
     Dosage: 81 MG, QD
     Route: 048
  4. ASPIRIN [Concomitant]
     Dosage: 81 MG, QOD
     Route: 048
     Dates: start: 20050209

REACTIONS (8)
  - ABDOMINAL PAIN LOWER [None]
  - ANURIA [None]
  - ASTHENIA [None]
  - CONDITION AGGRAVATED [None]
  - CONTUSION [None]
  - DEHYDRATION [None]
  - DIARRHOEA [None]
  - HAEMORRHAGE SUBCUTANEOUS [None]
